FAERS Safety Report 9355630 (Version 1)
Quarter: 2013Q2

REPORT INFORMATION
  Report Type: Spontaneous
  Country: US (occurrence: None)
  Receive Date: 20130618
  Receipt Date: 20130618
  Transmission Date: 20140414
  Serious: Yes (Life-Threatening)
  Sender: FDA-Public Use
  Company Number: None

PATIENT
  Age: 68 Year
  Sex: Female
  Weight: 150 kg

DRUGS (6)
  1. OMEPRAZOLE [Suspect]
     Indication: GASTROOESOPHAGEAL REFLUX DISEASE
     Dosage: 1 CAPSULE 1 PER DAY MOUTH
     Route: 048
     Dates: start: 20130605, end: 20130605
  2. PROPRANALOL [Concomitant]
  3. ZOLOFT [Concomitant]
  4. SIMVASTATIN [Concomitant]
  5. TRIAMETERENE [Concomitant]
  6. FOLPLEX [Concomitant]

REACTIONS (11)
  - Pruritus [None]
  - Erythema [None]
  - Local swelling [None]
  - Product quality issue [None]
  - Rash [None]
  - Urticaria [None]
  - Dizziness [None]
  - Dyspnoea [None]
  - Pruritus [None]
  - Pruritus [None]
  - Pruritus [None]
